FAERS Safety Report 7636285-8 (Version None)
Quarter: 2011Q3

REPORT INFORMATION
  Report Type: 
  Country: None (occurrence: None)
  Receive Date: 20110726
  Receipt Date: 20110701
  Transmission Date: 20111222
  Serious: Yes (Death, Hospitalization)
  Sender: FDA-Public Use
  Company Number: US-GLAXOSMITHKLINE-A0748431A

PATIENT
  Age: 57 Year
  Sex: Male
  Weight: 75 kg

DRUGS (14)
  1. AVANDIA [Suspect]
     Indication: TYPE 2 DIABETES MELLITUS
     Dosage: 4MG TWICE PER DAY
     Route: 048
     Dates: start: 20030101, end: 20060420
  2. LISINOPRIL [Concomitant]
  3. DIGOXIN [Concomitant]
  4. ZOLOFT [Concomitant]
     Dates: start: 19990101, end: 20060420
  5. COREG [Concomitant]
     Dates: start: 20040101, end: 20060420
  6. SYNTHROID [Concomitant]
  7. DOXYCYCLINE [Concomitant]
  8. AVANDAMET [Suspect]
     Indication: TYPE 2 DIABETES MELLITUS
     Route: 048
     Dates: end: 20060420
  9. ZOCOR [Concomitant]
     Dates: start: 19990101, end: 20060420
  10. METFORMIN HCL [Concomitant]
     Dosage: 500MG UNKNOWN
     Route: 048
     Dates: start: 20010101, end: 20060420
  11. FUROSEMIDE [Concomitant]
  12. GLYBURIDE [Concomitant]
     Dates: start: 20000101, end: 20060420
  13. ZETIA [Concomitant]
  14. SPIRONOLACTONE [Concomitant]

REACTIONS (1)
  - CARDIAC DISORDER [None]
